FAERS Safety Report 13075169 (Version 1)
Quarter: 2016Q4

REPORT INFORMATION
  Report Type: Report from Study
  Country: US (occurrence: US)
  Receive Date: 20161230
  Receipt Date: 20161230
  Transmission Date: 20170207
  Serious: Yes (Life-Threatening)
  Sender: FDA-Public Use
  Company Number: PHHY2016US179685

PATIENT
  Age: 51 Year
  Sex: Female
  Weight: 105.5 kg

DRUGS (1)
  1. GILENYA [Suspect]
     Active Substance: FINGOLIMOD HYDROCHLORIDE
     Indication: MULTIPLE SCLEROSIS
     Dosage: 0.5 MG, QD
     Route: 048
     Dates: start: 20160421, end: 20160617

REACTIONS (1)
  - Electrocardiogram T wave inversion [Recovering/Resolving]

NARRATIVE: CASE EVENT DATE: 20160421
